FAERS Safety Report 7344560-X (Version None)
Quarter: 2011Q1

REPORT INFORMATION
  Report Type: 
  Country: None (occurrence: None)
  Receive Date: 20110308
  Receipt Date: 20110308
  Transmission Date: 20110831
  Serious: Yes (Death)
  Sender: FDA-Public Use
  Company Number: None

PATIENT
  Age: 64 Year
  Sex: Male

DRUGS (1)
  1. AMIODARONE HCL [Suspect]
     Indication: ATRIAL FIBRILLATION
     Dosage: 400 MG 3 TIMES PER DAY FOR FIRST 5 DAYS 400MG 2 DAYS PER DAY FOR REMAINDER
     Dates: start: 20081028, end: 20090227

REACTIONS (1)
  - DEATH [None]
